FAERS Safety Report 9295327 (Version 1)
Quarter: 2013Q1

REPORT INFORMATION
  Report Type: Spontaneous
  Country: US (occurrence: US)
  Receive Date: 20121227
  Receipt Date: 20121227
  Transmission Date: 20140127
  Serious: No
  Sender: FDA-Public Use
  Company Number: PHEH2012US016488

PATIENT
  Age: 62 Year
  Sex: Male

DRUGS (2)
  1. AFINITOR [Suspect]
     Indication: RENAL CANCER
     Route: 048
     Dates: start: 20120525
  2. SYNTHROID (LEVOTHYROXINE SODIUM) [Concomitant]

REACTIONS (7)
  - Wheezing [None]
  - Erythema [None]
  - Impaired healing [None]
  - Dysgeusia [None]
  - Palmar-plantar erythrodysaesthesia syndrome [None]
  - Scratch [None]
  - Cough [None]
